FAERS Safety Report 4774877-4 (Version None)
Quarter: 2005Q3

REPORT INFORMATION
  Report Type: 
  Country: None (occurrence: None)
  Receive Date: 20050919
  Receipt Date: 20050908
  Transmission Date: 20060218
  Serious: Yes (Other)
  Sender: FDA-Public Use
  Company Number: 2005125700

PATIENT
  Age: 62 Year
  Sex: Female
  Weight: 63.5036 kg

DRUGS (3)
  1. NEURONTIN [Suspect]
     Indication: DEPRESSION
     Dosage: 2400 MG (800 MG, 1 AM 2 PM)
  2. EFFEXOR [Concomitant]
  3. CELEXA [Concomitant]

REACTIONS (6)
  - HEADACHE [None]
  - LOCAL SWELLING [None]
  - METASTASES TO LYMPH NODES [None]
  - PAIN [None]
  - SQUAMOUS CELL CARCINOMA [None]
  - SWELLING FACE [None]
